FAERS Safety Report 8180256-2 (Version None)
Quarter: 2012Q1

REPORT INFORMATION
  Report Type: 
  Country: None (occurrence: None)
  Receive Date: 20120302
  Receipt Date: 20110311
  Transmission Date: 20120608
  Serious: No
  Sender: FDA-Public Use
  Company Number: US-GLAXOSMITHKLINE-A0917832A

PATIENT
  Age: 61 Year
  Sex: Female

DRUGS (1)
  1. CLOBETASOL PROPIONATE [Suspect]
     Indication: PRURITUS
     Route: 061
     Dates: start: 20110101, end: 20110301

REACTIONS (1)
  - SKIN DISCOLOURATION [None]
